FAERS Safety Report 19955454 (Version 3)
Quarter: 2021Q4

REPORT INFORMATION
  Report Type: Spontaneous
  Country: US (occurrence: US)
  Receive Date: 20211014
  Receipt Date: 20211220
  Transmission Date: 20220303
  Serious: Yes (Hospitalization, Other)
  Sender: FDA-Public Use
  Company Number: US-PFIZER INC-202101366575

PATIENT
  Age: 46 Year
  Sex: Female
  Weight: 91.429 kg

DRUGS (41)
  1. XELJANZ XR [Suspect]
     Active Substance: TOFACITINIB CITRATE
     Indication: Psoriatic arthropathy
     Dosage: 11 MG
     Dates: start: 20210817
  2. XELJANZ XR [Suspect]
     Active Substance: TOFACITINIB CITRATE
     Dosage: 11 MG, DAILY
     Route: 048
     Dates: start: 20210722, end: 20211001
  3. XELJANZ XR [Suspect]
     Active Substance: TOFACITINIB CITRATE
     Dosage: 11 MG, DAILY
     Route: 048
  4. ATORVASTATIN [Concomitant]
     Active Substance: ATORVASTATIN
     Dosage: 10 MG, DAILY
     Route: 048
     Dates: start: 20210825
  5. ATORVASTATIN [Concomitant]
     Active Substance: ATORVASTATIN
     Dosage: 10 MG, DAILY
     Route: 048
     Dates: start: 20211018
  6. VITAMIN B12 [Concomitant]
     Active Substance: CYANOCOBALAMIN
     Dosage: 500 UG, DAILY
     Route: 048
     Dates: start: 20190131
  7. CELECOXIB [Concomitant]
     Active Substance: CELECOXIB
     Dosage: 100 MG, 2X/DAY (TAKE 1 CAPSULE BY MOUTH TWICE A DAY WITH MEALS )
     Route: 048
     Dates: start: 20210818
  8. CELECOXIB [Concomitant]
     Active Substance: CELECOXIB
     Dosage: 100 MG, 2X/DAY (TAKE 1 CAPSULE BY MOUTH TWICE A DAY WITH MEALS )
     Route: 048
     Dates: start: 20210921
  9. DICLOFENAC [Concomitant]
     Active Substance: DICLOFENAC
     Dosage: 2 G, 4X/DAY
     Route: 061
     Dates: start: 20200721
  10. FLAXSEED [Concomitant]
     Active Substance: FLAX SEED
     Dosage: UNK, DAILY
     Dates: start: 20190131
  11. LUTEIN [Concomitant]
     Active Substance: LUTEIN
     Dosage: UNK, DAILY
     Dates: start: 20190131
  12. MYRBETRIQ [Concomitant]
     Active Substance: MIRABEGRON
     Dosage: 25 MG, DAILY
     Route: 048
     Dates: start: 20210916
  13. MYRBETRIQ [Concomitant]
     Active Substance: MIRABEGRON
     Dosage: 25 MG, DAILY
     Route: 048
     Dates: start: 20210922
  14. OMEPRAZOLE [Concomitant]
     Active Substance: OMEPRAZOLE
     Dosage: 20 MG, DAILY
     Route: 048
     Dates: start: 20190131
  15. PREDNISONE [Concomitant]
     Active Substance: PREDNISONE
     Indication: Condition aggravated
     Dosage: 5 MG
     Dates: start: 20210916
  16. PREDNISONE [Concomitant]
     Active Substance: PREDNISONE
     Indication: Psoriatic arthropathy
     Dosage: 5 MG, 2X/DAY
     Route: 048
     Dates: start: 20211014
  17. PREDNISONE [Concomitant]
     Active Substance: PREDNISONE
     Dosage: 15 MG, DAILY (TAKING 10 MG Q.A.M., 5 MG Q.P.M.)
     Route: 048
  18. PROCHLORPERAZINE MALEATE [Concomitant]
     Active Substance: PROCHLORPERAZINE MALEATE
     Dosage: 5 MG, AS NEEDED
     Dates: start: 20200628
  19. SUMATRIPTAN SUCCINATE [Concomitant]
     Active Substance: SUMATRIPTAN SUCCINATE
     Indication: Migraine
     Dosage: 50 MG, AS NEEDED
     Dates: start: 20171202
  20. TYLENOL [Concomitant]
     Active Substance: ACETAMINOPHEN
     Dosage: 325 MG, AS NEEDED (2 PO Q 4-6 HOURS)
     Route: 048
     Dates: start: 20210302
  21. VENLAFAXINE HYDROCHLORIDE [Concomitant]
     Active Substance: VENLAFAXINE HYDROCHLORIDE
     Dosage: 150 MG, 1X/DAY
     Route: 048
     Dates: start: 20210902
  22. VITAMIN D3 [Concomitant]
     Active Substance: CHOLECALCIFEROL
     Dosage: 4000 IU, DAILY
     Dates: start: 20190131
  23. ZOLPIDEM [Concomitant]
     Active Substance: ZOLPIDEM TARTRATE
     Dosage: 5 MG, 1X/DAY
     Route: 048
     Dates: start: 20210310
  24. ZOLPIDEM [Concomitant]
     Active Substance: ZOLPIDEM TARTRATE
     Dosage: 5 MG, AS NEEDED
     Route: 048
     Dates: start: 20211006
  25. CIMZIA [Concomitant]
     Active Substance: CERTOLIZUMAB PEGOL
     Dosage: UNK
     Dates: start: 20210225
  26. OTEZLA [Concomitant]
     Active Substance: APREMILAST
     Dosage: UNK
  27. COSENTYX [Concomitant]
     Active Substance: SECUKINUMAB
     Dosage: UNK
  28. STELARA [Concomitant]
     Active Substance: USTEKINUMAB
     Dosage: UNK
  29. TALTZ [Concomitant]
     Active Substance: IXEKIZUMAB
     Dosage: UNK
     Dates: start: 201801, end: 202102
  30. TALTZ [Concomitant]
     Active Substance: IXEKIZUMAB
     Dosage: 100 MG
     Dates: start: 20211021
  31. TALTZ [Concomitant]
     Active Substance: IXEKIZUMAB
     Dosage: 80 MG
     Dates: start: 20211021
  32. KENALOG [Concomitant]
     Active Substance: TRIAMCINOLONE ACETONIDE
     Dosage: 20 MG
  33. KENALOG [Concomitant]
     Active Substance: TRIAMCINOLONE ACETONIDE
     Dosage: 40 UNK
  34. LIDOCAINE [Concomitant]
     Active Substance: LIDOCAINE
     Dosage: 1 ML (1ML OF 1% LIDOCAINE)
  35. CELEBREX [Concomitant]
     Active Substance: CELECOXIB
     Indication: Gastrointestinal disorder
     Dosage: 100 MG, 2X/DAY
     Dates: start: 20200721
  36. CELEBREX [Concomitant]
     Active Substance: CELECOXIB
     Indication: Psoriatic arthropathy
  37. CLOPIDOGREL [Concomitant]
     Active Substance: CLOPIDOGREL BISULFATE
     Dosage: 75 MG
  38. GABAPENTIN [Concomitant]
     Active Substance: GABAPENTIN
     Dosage: 100 MG
     Dates: start: 20211019
  39. NITRO-BID [Concomitant]
     Active Substance: NITROGLYCERIN
     Dosage: UNK (2 % TRANSDERMAL OINTMENT)
     Dates: start: 20211005
  40. TRAMADOL [Concomitant]
     Active Substance: TRAMADOL
     Dosage: 50 MG, AS NEEDED
     Route: 048
     Dates: start: 20211007
  41. DELTASONE [Concomitant]
     Active Substance: PREDNISONE
     Dosage: 10 MG, 2X/DAY
     Route: 048
     Dates: start: 20211002, end: 20211023

REACTIONS (8)
  - Thrombosis [Recovering/Resolving]
  - Poor peripheral circulation [Unknown]
  - Arterial occlusive disease [Unknown]
  - Myocardial infarction [Unknown]
  - Arthralgia [Unknown]
  - Weight decreased [Unknown]
  - Sacral pain [Unknown]
  - Asthenia [Unknown]

NARRATIVE: CASE EVENT DATE: 20211001
